FAERS Safety Report 26154967 (Version 2)
Quarter: 2025Q4

REPORT INFORMATION
  Report Type: Spontaneous
  Country: CN (occurrence: CN)
  Receive Date: 20251215
  Receipt Date: 20251218
  Transmission Date: 20260118
  Serious: Yes (Other)
  Sender: ROCHE
  Company Number: CN-ROCHE-10000457744

PATIENT
  Age: 62 Year
  Sex: Female

DRUGS (6)
  1. BEVACIZUMAB [Suspect]
     Active Substance: BEVACIZUMAB
     Indication: Metastases to lymph nodes
  2. BEVACIZUMAB [Suspect]
     Active Substance: BEVACIZUMAB
     Indication: Metastases to lymph nodes
  3. CAPECITABINE [Suspect]
     Active Substance: CAPECITABINE
     Indication: Metastases to lymph nodes
  4. CAPECITABINE [Suspect]
     Active Substance: CAPECITABINE
     Indication: Metastases to lymph nodes
  5. OXALIPLATIN [Suspect]
     Active Substance: OXALIPLATIN
     Indication: Metastases to lymph nodes
  6. OXALIPLATIN [Suspect]
     Active Substance: OXALIPLATIN
     Indication: Metastases to lymph nodes

REACTIONS (1)
  - Myelosuppression [Unknown]
